FAERS Safety Report 15632308 (Version 1)
Quarter: 2018Q4

REPORT INFORMATION
  Report Type: Report from Study
  Country: US (occurrence: US)
  Receive Date: 20181119
  Receipt Date: 20181119
  Transmission Date: 20190205
  Serious: Yes (Other)
  Sender: FDA-Public Use
  Company Number: US-GILEAD-2018-0374605

PATIENT
  Age: 77 Year
  Sex: Female

DRUGS (2)
  1. WARFARIN [Concomitant]
     Active Substance: WARFARIN
  2. AMBRISENTAN [Suspect]
     Active Substance: AMBRISENTAN
     Indication: PULMONARY HYPERTENSION
     Dosage: 5 MG, QD
     Route: 065
     Dates: start: 20180619

REACTIONS (5)
  - Irritable bowel syndrome [Not Recovered/Not Resolved]
  - Blood glucose decreased [Unknown]
  - Pulmonary hypertension [Not Recovered/Not Resolved]
  - Presyncope [Unknown]
  - Diabetes mellitus [Not Recovered/Not Resolved]
